FAERS Safety Report 6169132-4 (Version None)
Quarter: 2009Q2

REPORT INFORMATION
  Report Type: 
  Country: None (occurrence: None)
  Receive Date: 20090427
  Receipt Date: 20090413
  Transmission Date: 20091009
  Serious: Yes (Hospitalization, Disabling)
  Sender: FDA-Public Use
  Company Number: US-ELI_LILLY_AND_COMPANY-US200904002782

PATIENT
  Age: 58 Year
  Sex: Female

DRUGS (1)
  1. ZYPREXA [Suspect]
     Dosage: 10 MG, 3/D
     Dates: start: 19980101, end: 20080901

REACTIONS (14)
  - ABNORMAL BEHAVIOUR [None]
  - ACTIVITIES OF DAILY LIVING IMPAIRED [None]
  - BLOOD ELECTROLYTES DECREASED [None]
  - BLOOD SODIUM ABNORMAL [None]
  - CONFUSIONAL STATE [None]
  - CRYING [None]
  - DIABETES MELLITUS [None]
  - DRUG RESISTANCE [None]
  - IMPULSE-CONTROL DISORDER [None]
  - INSOMNIA [None]
  - MALAISE [None]
  - OVERDOSE [None]
  - VOMITING [None]
  - WEIGHT INCREASED [None]
